FAERS Safety Report 12718517 (Version 1)
Quarter: 2016Q3

REPORT INFORMATION
  Report Type: Spontaneous
  Country: FR (occurrence: FR)
  Receive Date: 20160906
  Receipt Date: 20160906
  Transmission Date: 20161109
  Serious: Yes (Hospitalization)
  Sender: FDA-Public Use
  Company Number: FR-BAYER-2016-172122

PATIENT
  Age: 29 Year
  Sex: Male

DRUGS (6)
  1. TAZOCILLINE [Suspect]
     Active Substance: PIPERACILLIN SODIUM\TAZOBACTAM SODIUM
     Indication: OSTEITIS
     Dosage: 4 G, TID
     Route: 042
     Dates: start: 20150915, end: 20151005
  2. SERTRALINE [Concomitant]
     Active Substance: SERTRALINE HYDROCHLORIDE
     Dosage: 50 MG, OM
     Route: 048
  3. SERESTA [Concomitant]
     Active Substance: OXAZEPAM
     Dosage: 100 MG, QD
     Route: 048
  4. VALDOXAN [Suspect]
     Active Substance: AGOMELATINE
     Indication: OSTEITIS
     Dosage: 25 MG, UNK
     Route: 048
     Dates: start: 20150915, end: 20151005
  5. DEPAMIDE [Concomitant]
     Active Substance: VALPROMIDE
     Dosage: 900 MG, QD
     Route: 048
  6. CIFLOX [Suspect]
     Active Substance: CIPROFLOXACIN
     Indication: OSTEITIS
     Dosage: 750 MG, BID
     Route: 048
     Dates: start: 20150830, end: 20151005

REACTIONS (2)
  - Neutropenia [Recovered/Resolved]
  - Drug reaction with eosinophilia and systemic symptoms [Recovered/Resolved]

NARRATIVE: CASE EVENT DATE: 20151005
